FAERS Safety Report 10777033 (Version 1)
Quarter: 2015Q1

REPORT INFORMATION
  Report Type: Spontaneous
  Country: NL (occurrence: NL)
  Receive Date: 20150209
  Receipt Date: 20150209
  Transmission Date: 20150721
  Serious: Yes (Hospitalization, Other)
  Sender: FDA-Public Use
  Company Number: NL-TEVA-538433ISR

PATIENT
  Age: 46 Year
  Sex: Female

DRUGS (2)
  1. MICONAZOLNITRAAT SANDOZ STROOIPOEDER 20, STROOIPOEDER 20 MG/G [Suspect]
     Active Substance: MICONAZOLE NITRATE
     Dates: start: 20150126
  2. LAMISIL [Suspect]
     Active Substance: TERBINAFINE HYDROCHLORIDE

REACTIONS (15)
  - Burning sensation [Unknown]
  - Tinnitus [Unknown]
  - Hypersensitivity [Unknown]
  - Dry mouth [Unknown]
  - Pruritus [Unknown]
  - Head discomfort [Unknown]
  - Abdominal discomfort [Unknown]
  - Dizziness [Unknown]
  - Muscle strain [Unknown]
  - Musculoskeletal discomfort [Unknown]
  - Lip dry [None]
  - Lip swelling [Unknown]
  - Confusional state [Unknown]
  - Peripheral swelling [Unknown]
  - Palpitations [Unknown]

NARRATIVE: CASE EVENT DATE: 20150127
